FAERS Safety Report 14822418 (Version 3)
Quarter: 2018Q2

REPORT INFORMATION
  Report Type: Spontaneous
  Country: BR (occurrence: BR)
  Receive Date: 20180427
  Receipt Date: 20180523
  Transmission Date: 20180711
  Serious: Yes (Other)
  Sender: FDA-Public Use
  Company Number: BR-PFIZER INC-2018169181

PATIENT
  Age: 65 Year
  Sex: Male

DRUGS (3)
  1. FRONTAL [Suspect]
     Active Substance: ALPRAZOLAM
     Indication: INSOMNIA
  2. FRONTAL [Suspect]
     Active Substance: ALPRAZOLAM
     Indication: TENSION
     Dosage: 2 MG, 1 TABLET IN THE MORNING AND 1 TABLET IN THE EVENING
     Dates: start: 2003
  3. CRESTOR [Concomitant]
     Active Substance: ROSUVASTATIN CALCIUM
     Dosage: UNK
     Dates: start: 2008

REACTIONS (3)
  - Neoplasm malignant [Recovering/Resolving]
  - Drug dependence [Not Recovered/Not Resolved]
  - Insomnia [Not Recovered/Not Resolved]

NARRATIVE: CASE EVENT DATE: 2003
